FAERS Safety Report 6271576-7 (Version None)
Quarter: 2009Q3

REPORT INFORMATION
  Report Type: 
  Country: None (occurrence: None)
  Receive Date: 20090715
  Receipt Date: 20090715
  Transmission Date: 20100115
  Serious: No
  Sender: FDA-Public Use
  Company Number: None

PATIENT
  Age: 57 Year
  Sex: Female

DRUGS (3)
  1. TRAZODONE HCL [Suspect]
     Indication: DEPRESSION
     Dosage: 50 MG NIGHTLY
     Dates: start: 20090601
  2. TRAZODONE HCL [Suspect]
     Indication: SOMNOLENCE
     Dosage: 50 MG NIGHTLY
     Dates: start: 20090601
  3. TRAZODONE HCL [Suspect]

REACTIONS (3)
  - ANXIETY [None]
  - INSOMNIA [None]
  - IRRITABILITY [None]
